FAERS Safety Report 5386675-1 (Version None)
Quarter: 2007Q3

REPORT INFORMATION
  Report Type: 
  Country: None (occurrence: None)
  Receive Date: 20070713
  Receipt Date: 20070703
  Transmission Date: 20080115
  Serious: Yes (Other)
  Sender: FDA-Public Use
  Company Number: CO-JNJFOC-20070701051

PATIENT
  Age: 13 Year
  Sex: Male
  Weight: 37 kg

DRUGS (4)
  1. INFLIXIMAB [Suspect]
     Indication: JUVENILE ARTHRITIS
     Route: 042
  2. PREDNISOLONE [Concomitant]
     Indication: JUVENILE ARTHRITIS
  3. FOLIC ACID [Concomitant]
     Indication: SICKLE CELL ANAEMIA
  4. METHOTREXATE [Concomitant]
     Indication: JUVENILE ARTHRITIS

REACTIONS (3)
  - CHEST DISCOMFORT [None]
  - HEADACHE [None]
  - INFUSION RELATED REACTION [None]
